FAERS Safety Report 9029461 (Version 1)
Quarter: 2013Q1

REPORT INFORMATION
  Report Type: Spontaneous
  Country: US (occurrence: US)
  Receive Date: 20130125
  Receipt Date: 20130125
  Transmission Date: 20140127
  Serious: Yes (Other)
  Sender: FDA-Public Use
  Company Number: US-SANOFI-AVENTIS-2013SA004888

PATIENT
  Age: 41 Year
  Sex: Female
  Weight: 63.3 kg

DRUGS (15)
  1. ARAVA [Suspect]
     Indication: IMMUNOSUPPRESSANT DRUG THERAPY
     Route: 048
     Dates: start: 20111026
  2. DELTASONE [Suspect]
     Indication: IMMUNOSUPPRESSANT DRUG THERAPY
     Route: 048
     Dates: start: 20110414
  3. TACROLIMUS [Suspect]
     Indication: RENAL TRANSPLANT
     Route: 065
     Dates: start: 20110409
  4. TACROLIMUS [Suspect]
     Indication: RENAL TRANSPLANT
     Route: 065
     Dates: start: 20120105, end: 20120319
  5. TACROLIMUS [Suspect]
     Indication: RENAL TRANSPLANT
     Route: 048
     Dates: start: 20120320
  6. CELLCEPT [Suspect]
     Indication: RENAL TRANSPLANT
     Route: 042
     Dates: start: 20110408, end: 20120408
  7. CELLCEPT [Suspect]
     Indication: RENAL TRANSPLANT
     Route: 048
     Dates: start: 20110409, end: 20110712
  8. CELLCEPT [Suspect]
     Indication: RENAL TRANSPLANT
     Route: 048
     Dates: start: 20110713, end: 20111026
  9. CHLORDIAZEPOXIDE HYDROCHLORIDE/CLIDINIUM BROMIDE [Concomitant]
     Indication: ANXIETY
     Dates: start: 20110408
  10. LONITEN [Concomitant]
     Indication: HYPERTENSION
     Dates: start: 20110804
  11. LOPRESSOR [Concomitant]
     Indication: HYPERTENSION
     Dates: start: 20110410
  12. PLAQUENIL [Concomitant]
     Indication: SYSTEMIC LUPUS ERYTHEMATOSUS
     Dates: start: 20110408
  13. PRAVACHOL [Concomitant]
     Indication: DYSLIPIDAEMIA
     Dates: start: 20110808
  14. PRILOSEC [Concomitant]
     Indication: GASTROOESOPHAGEAL REFLUX DISEASE
     Dates: start: 20110413
  15. DAILY MULTIVITAMIN [Concomitant]
     Route: 048
     Dates: start: 20110409

REACTIONS (2)
  - Condition aggravated [Not Recovered/Not Resolved]
  - Polyomavirus test positive [Not Recovered/Not Resolved]
